FAERS Safety Report 11680693 (Version 2)
Quarter: 2015Q4

REPORT INFORMATION
  Report Type: Spontaneous
  Country: DE (occurrence: DE)
  Receive Date: 20151029
  Receipt Date: 20151112
  Transmission Date: 20160304
  Serious: Yes (Hospitalization)
  Sender: FDA-Public Use
  Company Number: DE-ROCHE-1651963

PATIENT
  Age: 87 Year
  Sex: Male

DRUGS (2)
  1. LUCENTIS [Suspect]
     Active Substance: RANIBIZUMAB
     Indication: NEOVASCULAR AGE-RELATED MACULAR DEGENERATION
     Dosage: LAST DOSE 08/SEP/2015
     Route: 050
     Dates: start: 201407
  2. LUCENTIS [Suspect]
     Active Substance: RANIBIZUMAB
     Dosage: LAST DOSE 08/SEP/2015
     Route: 050
     Dates: start: 20150908, end: 20150908

REACTIONS (2)
  - Cerebrovascular accident [Recovered/Resolved with Sequelae]
  - Slow response to stimuli [Recovered/Resolved with Sequelae]

NARRATIVE: CASE EVENT DATE: 201510
